FAERS Safety Report 6902744-6 (Version None)
Quarter: 2010Q3

REPORT INFORMATION
  Report Type: 
  Country: None (occurrence: None)
  Receive Date: 20100803
  Receipt Date: 20080605
  Transmission Date: 20110219
  Serious: No
  Sender: FDA-Public Use
  Company Number: US-PFIZER INC-2008018523

PATIENT
  Sex: Female
  Weight: 71.2 kg

DRUGS (4)
  1. LYRICA [Suspect]
     Indication: FIBROMYALGIA
     Route: 048
     Dates: start: 20080101, end: 20080201
  2. BYETTA [Concomitant]
  3. ALL OTHER THERAPEUTIC PRODUCTS [Concomitant]
     Route: 048
  4. SITAGLIPTIN [Concomitant]
     Route: 048

REACTIONS (4)
  - GLOSSODYNIA [None]
  - IRON DEFICIENCY [None]
  - ORAL PAIN [None]
  - WEIGHT INCREASED [None]
